FAERS Safety Report 8445856-0 (Version None)
Quarter: 2012Q2

REPORT INFORMATION
  Report Type: 
  Country: None (occurrence: None)
  Receive Date: 20120618
  Receipt Date: 20120611
  Transmission Date: 20120825
  Serious: Yes (Hospitalization, Other)
  Sender: FDA-Public Use
  Company Number: JP-B.I. PHARMACEUTICALS,INC./RIDGEFIELD-2012-BP-06773NB

PATIENT
  Sex: Female
  Weight: 60 kg

DRUGS (12)
  1. PRADAXA [Suspect]
     Dosage: 220 MG
     Route: 048
     Dates: start: 20110523, end: 20120314
  2. CRESTOR [Concomitant]
     Dosage: 2.5 MG
     Route: 048
     Dates: start: 20111031
  3. URSO 250 [Concomitant]
     Dosage: 300 MG
     Route: 048
     Dates: start: 20110422
  4. NORVASC [Concomitant]
     Route: 048
  5. DISOPYRAMIDE PHOSPHATE [Concomitant]
     Dosage: 300 MG
     Route: 048
     Dates: start: 20110422
  6. EXFORGE [Concomitant]
     Route: 048
     Dates: start: 20120213
  7. PRADAXA [Suspect]
     Indication: CEREBROVASCULAR ACCIDENT PROPHYLAXIS
     Dosage: 300 MG
     Route: 048
     Dates: start: 20110426, end: 20110522
  8. DIGOXIN [Concomitant]
     Dosage: 0.125 MG
     Route: 048
     Dates: start: 20110422
  9. FAMOTIDINE [Concomitant]
     Dosage: 40 MG
     Route: 048
     Dates: start: 20110606
  10. DILTIAZEM HCL [Concomitant]
     Dosage: 90 MG
     Route: 048
     Dates: start: 20110422
  11. PRADAXA [Suspect]
     Dosage: 150 MG
     Route: 048
     Dates: start: 20120315
  12. JANUVIA [Concomitant]
     Dosage: 50 MG
     Route: 048
     Dates: start: 20111121

REACTIONS (3)
  - RETINAL HAEMORRHAGE [None]
  - VISUAL ACUITY REDUCED [None]
  - VITREOUS HAEMORRHAGE [None]
